FAERS Safety Report 16246114 (Version 1)
Quarter: 2019Q2

REPORT INFORMATION
  Report Type: Spontaneous
  Country: SG (occurrence: SG)
  Receive Date: 20190426
  Receipt Date: 20190426
  Transmission Date: 20190711
  Serious: Yes (Hospitalization, Other)
  Sender: FDA-Public Use
  Company Number: SG-SA-2019SA112530

PATIENT
  Age: 55 Year
  Sex: Female

DRUGS (2)
  1. DOPAMINE [Concomitant]
     Active Substance: DOPAMINE\DOPAMINE HYDROCHLORIDE
     Dosage: 5 MCG/KG/MIN
  2. ENOXAPARIN SODIUM. [Suspect]
     Active Substance: ENOXAPARIN SODIUM
     Dosage: UNK

REACTIONS (5)
  - Traumatic lung injury [Unknown]
  - Subdural haemorrhage [Unknown]
  - Acute kidney injury [Unknown]
  - Pneumonia [Unknown]
  - Delirium [Unknown]
